FAERS Safety Report 7061496-2 (Version None)
Quarter: 2010Q4

REPORT INFORMATION
  Report Type: 
  Country: None (occurrence: None)
  Receive Date: 20101026
  Receipt Date: 20100825
  Transmission Date: 20110411
  Serious: Yes (Other)
  Sender: FDA-Public Use
  Company Number: US-SANOFI-AVENTIS-2010SA052904

PATIENT
  Age: 77 Year
  Sex: Male

DRUGS (4)
  1. SOLOSTAR [Suspect]
     Dates: start: 20100820
  2. LANTUS [Suspect]
     Dosage: VIA VIAL
     Route: 058
     Dates: start: 20080101
  3. LANTUS [Suspect]
     Dosage: DOSE:30 UNIT(S)
     Route: 058
     Dates: start: 20100820
  4. HUMALOG [Concomitant]
     Dates: start: 19750101

REACTIONS (3)
  - BLOOD GLUCOSE INCREASED [None]
  - DEVICE MALFUNCTION [None]
  - PRODUCT QUALITY ISSUE [None]
